FAERS Safety Report 16953772 (Version 1)
Quarter: 2019Q4

REPORT INFORMATION
  Report Type: Spontaneous
  Country: US (occurrence: US)
  Receive Date: 20191023
  Receipt Date: 20191023
  Transmission Date: 20200122
  Serious: Yes (Other)
  Sender: FDA-Public Use
  Company Number: US-TEVA-2019-US-1124728

PATIENT
  Sex: Female

DRUGS (1)
  1. CLONAZEPAM TEVA [Suspect]
     Active Substance: CLONAZEPAM
     Route: 065
     Dates: start: 20190924

REACTIONS (6)
  - Drug ineffective [Unknown]
  - Nervous system disorder [Unknown]
  - Feeling abnormal [Unknown]
  - Malaise [Unknown]
  - Product quality issue [Unknown]
  - Near death experience [Unknown]

NARRATIVE: CASE EVENT DATE: 20190924
